FAERS Safety Report 4299514-7 (Version None)
Quarter: 2004Q1

REPORT INFORMATION
  Report Type: 
  Country: None (occurrence: None)
  Receive Date: 20040217
  Receipt Date: 20040206
  Transmission Date: 20041129
  Serious: Yes (Other)
  Sender: FDA-Public Use
  Company Number: 200410631BCC

PATIENT
  Age: 65 Year
  Sex: Female
  Weight: 85.2762 kg

DRUGS (10)
  1. ALEVE [Suspect]
     Indication: HERPES ZOSTER
     Dosage: 440 MG, TID, ORAL
     Route: 048
     Dates: start: 20040122, end: 20040204
  2. ALEVE [Suspect]
     Indication: PAIN
     Dosage: 440 MG, TID, ORAL
     Route: 048
     Dates: start: 20040122, end: 20040204
  3. ALEVE [Suspect]
     Indication: HERPES ZOSTER
     Dosage: 220 MG, ONCE, ORAL
     Route: 048
     Dates: start: 20040205, end: 20040205
  4. ALEVE [Suspect]
     Indication: PAIN
     Dosage: 220 MG, ONCE, ORAL
     Route: 048
     Dates: start: 20040205, end: 20040205
  5. NEURONTIN [Concomitant]
  6. HYZAAR [Concomitant]
  7. TEGRETOL [Concomitant]
  8. LIPITOR [Concomitant]
  9. TRAZODONE HCL [Concomitant]
  10. EFFEXOR [Concomitant]

REACTIONS (1)
  - LOSS OF CONSCIOUSNESS [None]
